FAERS Safety Report 10203916 (Version 2)
Quarter: 2015Q2

REPORT INFORMATION
  Report Type: Spontaneous
  Country: FR (occurrence: FR)
  Receive Date: 20140529
  Receipt Date: 20150519
  Transmission Date: 20150821
  Serious: Yes (Other)
  Sender: FDA-Public Use
  Company Number: PHHY2014FR061616

PATIENT
  Age: 60 Year
  Sex: Female

DRUGS (3)
  1. AGOMELATINE [Suspect]
     Active Substance: AGOMELATINE
     Indication: AFFECTIVE DISORDER
     Dosage: 25 MG, QD
     Route: 065
     Dates: start: 201201
  2. FLUOXETINE [Suspect]
     Active Substance: FLUOXETINE\FLUOXETINE HYDROCHLORIDE
     Indication: AFFECTIVE DISORDER
     Dosage: 20 MG, BID
     Route: 065
     Dates: start: 200909, end: 201201
  3. SULPIRIDE [Suspect]
     Active Substance: SULPIRIDE
     Indication: AFFECTIVE DISORDER
     Dosage: 200 MG, BID
     Route: 065
     Dates: start: 200909

REACTIONS (5)
  - Chest pain [Recovered/Resolved]
  - Drug ineffective [Unknown]
  - Tachycardia [Recovered/Resolved]
  - Anxiety [Unknown]
  - Insomnia [Unknown]
